FAERS Safety Report 13248052 (Version 1)
Quarter: 2017Q1

REPORT INFORMATION
  Report Type: Report from Study
  Country: None (occurrence: CO)
  Receive Date: 20170217
  Receipt Date: 20170217
  Transmission Date: 20170428
  Serious: Yes (Other)
  Sender: FDA-Public Use
  Company Number: CO-ABBVIE-17P-036-1877630-00

PATIENT
  Age: 48 Year
  Sex: Male
  Weight: 90 kg

DRUGS (2)
  1. NAPROXEN. [Concomitant]
     Active Substance: NAPROXEN
     Indication: PRODUCT USED FOR UNKNOWN INDICATION
  2. HUMIRA [Suspect]
     Active Substance: ADALIMUMAB
     Indication: PSORIASIS
     Route: 058
     Dates: start: 20160126, end: 20160503

REACTIONS (1)
  - Angiopathy [Not Recovered/Not Resolved]

NARRATIVE: CASE EVENT DATE: 20170211
